FAERS Safety Report 24539531 (Version 1)
Quarter: 2024Q4

REPORT INFORMATION
  Report Type: Spontaneous
  Country: US (occurrence: None)
  Receive Date: 20241022
  Receipt Date: 20241022
  Transmission Date: 20250115
  Serious: Yes (Life-Threatening, Hospitalization)
  Sender: Public
  Company Number: None

PATIENT
  Age: 87 Year
  Sex: Male

DRUGS (1)
  1. HYDROCHLOROTHIAZIDE [Suspect]
     Active Substance: HYDROCHLOROTHIAZIDE
     Indication: Hypertension
     Dosage: OTHER FREQUENCY : AM;?
     Route: 048
     Dates: start: 20010213, end: 20240513

REACTIONS (2)
  - Hyponatraemia [None]
  - Myalgia [None]

NARRATIVE: CASE EVENT DATE: 20240514
